FAERS Safety Report 7926718-1 (Version None)
Quarter: 2011Q4

REPORT INFORMATION
  Report Type: 
  Country: None (occurrence: None)
  Receive Date: 20111118
  Receipt Date: 20111108
  Transmission Date: 20120403
  Serious: Yes (Death, Hospitalization)
  Sender: FDA-Public Use
  Company Number: CA-JNJFOC-20111103768

PATIENT
  Sex: Male

DRUGS (1)
  1. REMICADE [Suspect]
     Indication: COLITIS ULCERATIVE
     Dosage: DOSE: 300 (UNITS UNSPECIFIED)
     Route: 042
     Dates: start: 20090917, end: 20110916

REACTIONS (2)
  - DEATH [None]
  - PNEUMONIA [None]
